FAERS Safety Report 5505982-2 (Version None)
Quarter: 2007Q4

REPORT INFORMATION
  Report Type: 
  Country: None (occurrence: None)
  Receive Date: 20071101
  Receipt Date: 20071018
  Transmission Date: 20080405
  Serious: Yes (Other)
  Sender: FDA-Public Use
  Company Number: 2007EN000104

PATIENT
  Age: 63 Year
  Sex: Male

DRUGS (8)
  1. ABELCET [Suspect]
     Indication: ASPERGILLOSIS
     Dosage: 400 MG;QD;IV
     Route: 042
     Dates: start: 20070903, end: 20070909
  2. TAZOCIN [Concomitant]
  3. CIPROFLOXACIN [Concomitant]
  4. LINEZOLID [Concomitant]
  5. AMIODARONE HCL [Concomitant]
  6. LANSOPRAZOLE [Concomitant]
  7. COMBIVENT [Concomitant]
  8. ZOPICLONE [Concomitant]

REACTIONS (4)
  - BLOOD PRESSURE INCREASED [None]
  - HEART RATE INCREASED [None]
  - INFUSION RELATED REACTION [None]
  - RESPIRATORY RATE INCREASED [None]
